FAERS Safety Report 21421197 (Version 2)
Quarter: 2022Q4

REPORT INFORMATION
  Report Type: Spontaneous
  Country: CA (occurrence: None)
  Receive Date: 20221007
  Receipt Date: 20221102
  Transmission Date: 20230112
  Serious: Yes (Other)
  Sender: FDA-Public Use
  Company Number: CA-ROCHE-3194545

PATIENT
  Age: 22 Year
  Sex: Female

DRUGS (5)
  1. RITUXIMAB [Suspect]
     Active Substance: RITUXIMAB
     Indication: Thrombotic thrombocytopenic purpura
     Route: 065
  2. COVID 19 VACCINE (UNK INGREDIENTS) [Concomitant]
  3. METHYLPREDNISOLONE ACETATE [Concomitant]
     Active Substance: METHYLPREDNISOLONE ACETATE
     Route: 042
  4. HUMAN PLASMA [Concomitant]
     Active Substance: HUMAN PLASMA
  5. PREDNISONE [Concomitant]
     Active Substance: PREDNISONE

REACTIONS (3)
  - Off label use [Unknown]
  - Thrombotic microangiopathy [Unknown]
  - Thrombotic thrombocytopenic purpura [Unknown]
